FAERS Safety Report 10028654 (Version 1)
Quarter: 2014Q1

REPORT INFORMATION
  Report Type: Spontaneous
  Country: US (occurrence: US)
  Receive Date: 20140321
  Receipt Date: 20140321
  Transmission Date: 20141002
  Serious: No
  Sender: FDA-Public Use
  Company Number: US-009507513-1403USA001562

PATIENT
  Sex: Female
  Weight: 74.83 kg

DRUGS (1)
  1. MIRALAX [Suspect]
     Indication: CONSTIPATION PROPHYLAXIS
     Dosage: UNK
     Route: 048
     Dates: start: 2011, end: 2013

REACTIONS (4)
  - Gastric disorder [Unknown]
  - Off label use [Unknown]
  - Incorrect drug administration duration [Unknown]
  - Product quality issue [Unknown]
